FAERS Safety Report 10203823 (Version 1)
Quarter: 2014Q2

REPORT INFORMATION
  Report Type: Spontaneous
  Country: US (occurrence: US)
  Receive Date: 20140529
  Receipt Date: 20140529
  Transmission Date: 20141212
  Serious: No
  Sender: FDA-Public Use
  Company Number: US-PFIZER INC-2014144292

PATIENT
  Sex: Male

DRUGS (3)
  1. LYRICA [Suspect]
     Indication: FIBROMYALGIA
     Dosage: UNK (TITRATE UP)
  2. LYRICA [Suspect]
     Dosage: 900 MG, DAILY
  3. LYRICA [Suspect]
     Dosage: UNK (TAPERING OFF)

REACTIONS (7)
  - Intentional product misuse [Unknown]
  - Pain [Unknown]
  - Peripheral coldness [Unknown]
  - Pyrexia [Unknown]
  - Feeling hot [Unknown]
  - Mood swings [Unknown]
  - Anger [Unknown]
